FAERS Safety Report 13784002 (Version 1)
Quarter: 2017Q3

REPORT INFORMATION
  Report Type: Spontaneous
  Country: FR (occurrence: FR)
  Receive Date: 20170724
  Receipt Date: 20170724
  Transmission Date: 20171127
  Serious: Yes (Disabling)
  Sender: FDA-Public Use
  Company Number: FR-BAYER-2017-135332

PATIENT
  Age: 37 Year
  Sex: Female

DRUGS (1)
  1. MIRENA [Suspect]
     Active Substance: LEVONORGESTREL
     Indication: CONTRACEPTION
     Dosage: 20 MCG/24HR, CONT
     Route: 015
     Dates: start: 20151209, end: 20170606

REACTIONS (15)
  - Tinnitus [Unknown]
  - Myalgia [Unknown]
  - Arthralgia [Unknown]
  - Nervousness [Unknown]
  - Formication [Unknown]
  - Extrasystoles [Unknown]
  - Gastrointestinal motility disorder [Unknown]
  - Tetany [Unknown]
  - Tachycardia [Unknown]
  - Anxiety [Unknown]
  - Hypoaesthesia [Unknown]
  - Fatigue [Unknown]
  - Poor quality sleep [Unknown]
  - Depression [Unknown]
  - Insomnia [Unknown]

NARRATIVE: CASE EVENT DATE: 20160217
